FAERS Safety Report 7023089-2 (Version None)
Quarter: 2010Q3

REPORT INFORMATION
  Report Type: 
  Country: None (occurrence: None)
  Receive Date: 20100930
  Receipt Date: 20100916
  Transmission Date: 20110219
  Serious: Yes (Hospitalization, Other)
  Sender: FDA-Public Use
  Company Number: PHEH2008US07467

PATIENT

DRUGS (63)
  1. ZOMETA [Suspect]
     Dosage: 4 MG, UNK
     Dates: start: 20040907, end: 20071101
  2. AREDIA [Suspect]
     Dosage: 90 MG OVER 2 HRS
     Route: 042
     Dates: start: 20040801
  3. THALIDOMIDE [Concomitant]
     Dosage: UNK
     Dates: start: 20040921
  4. THALIDOMIDE [Concomitant]
     Dosage: UNK
  5. STEROIDS NOS [Concomitant]
  6. CHEMOTHERAPEUTICS NOS [Concomitant]
  7. PREDNISONE [Concomitant]
     Dosage: 90 MG, UNK
  8. PREDNISONE [Concomitant]
     Dosage: 50 MG, PER DAY X 7 DAYS PER MONTH
     Dates: end: 20080704
  9. RITUXAN [Concomitant]
     Dosage: ONCE WEEKLY X 4 WEEKS
     Dates: start: 20030301
  10. DECADRON [Concomitant]
     Dosage: UNK
     Dates: start: 20040921
  11. TRAMADOL HCL [Concomitant]
     Dosage: 50 MG, Q6H
     Route: 048
  12. NEURONTIN [Concomitant]
     Dosage: 100 MG, TID
     Route: 048
  13. VALIUM [Concomitant]
     Indication: ANXIETY
     Dosage: 5 MG, PRN
  14. NEXIUM [Concomitant]
     Dosage: 20 MG, QD
     Route: 048
  15. AMITRIPTYLINE [Concomitant]
     Dosage: 25 MG, BID
     Route: 048
  16. PERCOCET [Concomitant]
     Dosage: 5/325 MG, TID
  17. VERAPAMIL [Concomitant]
     Dosage: 240 MG, DAILY
     Route: 048
  18. ADVAIR DISKUS 100/50 [Concomitant]
     Dosage: 100/50 1 PUFF DAILY
  19. SINGULAIR [Concomitant]
     Dosage: 10 MG, DAILY
     Route: 048
  20. ATIVAN [Concomitant]
     Dosage: 1 MG, BID
     Route: 048
  21. VELCADE [Concomitant]
     Indication: MULTIPLE MYELOMA
     Dosage: UNK
     Dates: start: 20080301, end: 20080501
  22. MELPHALAN HYDROCHLORIDE [Concomitant]
     Dosage: 8 MG, UNK
     Dates: end: 20080704
  23. MARIJUANA [Concomitant]
  24. CYTOXAN [Concomitant]
     Dosage: 100 MG, DAILY
  25. PROTONIX [Concomitant]
     Dosage: 40 MG, UNK
     Route: 048
  26. METOPROLOL TARTRATE [Concomitant]
     Dosage: 50 MG, UNK
  27. CLINDAMYCIN [Concomitant]
  28. FLUCONAZOLE [Concomitant]
  29. NICOTINE [Concomitant]
  30. COMPAZINE [Concomitant]
     Dosage: 10 MG, Q8H
     Route: 048
  31. CHANTIX [Concomitant]
  32. PROZAC [Concomitant]
  33. VICODIN [Concomitant]
  34. CEFTIN [Concomitant]
  35. ROXICET [Concomitant]
  36. COMBIVENT                               /GFR/ [Concomitant]
  37. PROTONIX [Concomitant]
  38. NICODERM [Concomitant]
  39. PNEUMOCOCCAL VACCINE [Concomitant]
  40. GABAPENTIN [Concomitant]
     Dosage: UNK / TID
  41. OMEPRAZOLE [Concomitant]
     Dosage: UNK
  42. REVLIMID [Concomitant]
     Dosage: UNK
  43. DEXAMETHASONE [Concomitant]
     Dosage: UNK
  44. DESMOPRESSIN ACETATE [Concomitant]
     Dosage: UNK
  45. ZOLOFT [Concomitant]
     Dosage: 50 MG / QD
     Route: 048
  46. SENNA [Concomitant]
     Dosage: UNK  / BID PRN
     Route: 048
  47. COLACE [Concomitant]
     Dosage: 100 MG / BID
     Route: 048
  48. OXYCONTIN [Concomitant]
     Dosage: 10 MG / DAILY EVERY 12 HRS
     Route: 048
  49. PROCRIT                            /00909301/ [Concomitant]
     Dosage: UNK
  50. AUGMENTIN '125' [Concomitant]
  51. PEPCID [Concomitant]
  52. FOLATE SODIUM [Concomitant]
  53. LASIX [Concomitant]
  54. MULTI-VITAMINS [Concomitant]
  55. ALLEGRA [Concomitant]
  56. ALLOPURINOL [Concomitant]
  57. DIAZEPAM [Concomitant]
  58. VORINOSTAT [Concomitant]
  59. PENTAMIDINE ISETHIONATE [Concomitant]
  60. IRON SULFATETHIAMIN COMPOUND TAB [Concomitant]
  61. THIAMINE HCL [Concomitant]
  62. ESOMEPRAZOLE [Concomitant]
  63. MONTELUKAST SODIUM [Concomitant]

REACTIONS (71)
  - ABDOMINAL PAIN [None]
  - ALANINE AMINOTRANSFERASE INCREASED [None]
  - ANAEMIA [None]
  - ANHEDONIA [None]
  - ANION GAP DECREASED [None]
  - ANXIETY [None]
  - APATHY [None]
  - ASPARTATE AMINOTRANSFERASE INCREASED [None]
  - BLOOD BILIRUBIN INCREASED [None]
  - BLOOD CALCIUM DECREASED [None]
  - BLOOD GLUCOSE INCREASED [None]
  - BLOOD LACTATE DEHYDROGENASE INCREASED [None]
  - BLOOD POTASSIUM DECREASED [None]
  - BODY TEMPERATURE INCREASED [None]
  - BONE DISORDER [None]
  - BONE LESION [None]
  - BRONCHITIS [None]
  - CHILLS [None]
  - CHOLECYSTITIS [None]
  - COAGULOPATHY [None]
  - CONDUCTION DISORDER [None]
  - CONTUSION [None]
  - CORONARY ARTERY DISEASE [None]
  - DECREASED APPETITE [None]
  - DECREASED INTEREST [None]
  - DEPRESSION [None]
  - DIARRHOEA [None]
  - DIZZINESS [None]
  - DYSPEPSIA [None]
  - EMPHYSEMA [None]
  - ENDODONTIC PROCEDURE [None]
  - ENTEROCOLITIS INFECTIOUS [None]
  - EXOSTOSIS [None]
  - FEBRILE NONHAEMOLYTIC TRANSFUSION REACTION [None]
  - GASTROOESOPHAGEAL REFLUX DISEASE [None]
  - GINGIVAL BLEEDING [None]
  - GINGIVAL DISORDER [None]
  - HEART RATE INCREASED [None]
  - HERPES SIMPLEX [None]
  - HYPERTENSION [None]
  - HYPOAESTHESIA [None]
  - HYPOAESTHESIA ORAL [None]
  - HYPOGONADISM [None]
  - INJURY [None]
  - INSOMNIA [None]
  - INTESTINAL OBSTRUCTION [None]
  - LUNG NEOPLASM [None]
  - MASTICATION DISORDER [None]
  - MENTAL DISORDER [None]
  - MITRAL VALVE INCOMPETENCE [None]
  - MULTIPLE MYELOMA [None]
  - NAUSEA [None]
  - NEPHROLITHIASIS [None]
  - NEURALGIA [None]
  - NEUROPATHY PERIPHERAL [None]
  - ORAL DISORDER [None]
  - OSTEONECROSIS OF JAW [None]
  - OSTEOSCLEROSIS [None]
  - PAIN [None]
  - PAIN IN JAW [None]
  - PALPITATIONS [None]
  - PARAESTHESIA [None]
  - PERIPHERAL SENSORY NEUROPATHY [None]
  - PLASMACYTOSIS [None]
  - SPINAL COMPRESSION FRACTURE [None]
  - STEM CELL TRANSPLANT [None]
  - SUICIDAL IDEATION [None]
  - THROMBOCYTOPENIA [None]
  - TOOTH EXTRACTION [None]
  - TRICUSPID VALVE INCOMPETENCE [None]
  - WEIGHT DECREASED [None]
